FAERS Safety Report 26026216 (Version 1)
Quarter: 2025Q4

REPORT INFORMATION
  Report Type: Spontaneous
  Country: US (occurrence: None)
  Receive Date: 20251111
  Receipt Date: 20251111
  Transmission Date: 20260117
  Serious: Yes (Other)
  Sender: FDA-CTU
  Company Number: None

PATIENT
  Sex: Female

DRUGS (11)
  1. NUCALA [Suspect]
     Active Substance: MEPOLIZUMAB
     Indication: Asthma
     Dosage: INJECT 1 PEN (100 MG) UNDER THE SKIN (SUBCUTANEOUS INJECTION) EVERY 28 DAYS?
     Route: 058
     Dates: start: 20250801
  2. AMOX/K CLAV TAB 500-125 [Concomitant]
  3. AZITHROMYCIN [Concomitant]
     Active Substance: AZITHROMYCIN
  4. CLINDAMYCIN HYDROCHLORIDE [Concomitant]
     Active Substance: CLINDAMYCIN HYDROCHLORIDE
  5. FLUTICASONE [Concomitant]
     Active Substance: FLUTICASONE
  6. GLIPIZIDE ER TAB 2.5MG [Concomitant]
  7. GUAIFENESIN TAB 600MG ER [Concomitant]
  8. HYDROXYZ HCL TAB 10MG [Concomitant]
  9. METRONIDAZOL GEL 0.75% VAG [Concomitant]
  10. MOMETASONE SPR 50MCG [Concomitant]
  11. OMEPRAZOLE [Concomitant]
     Active Substance: OMEPRAZOLE

REACTIONS (6)
  - Asthma [None]
  - Dyspnoea [None]
  - Nonspecific reaction [None]
  - Cardiac flutter [None]
  - Impaired quality of life [None]
  - Injection site reaction [None]
